FAERS Safety Report 7469472-2 (Version None)
Quarter: 2011Q2

REPORT INFORMATION
  Report Type: 
  Country: None (occurrence: None)
  Receive Date: 20110510
  Receipt Date: 20110503
  Transmission Date: 20111010
  Serious: Yes (Hospitalization)
  Sender: FDA-Public Use
  Company Number: GB-TEVA-280089ISR

PATIENT
  Age: 54 Year
  Sex: Male

DRUGS (2)
  1. LANSOPRAZOLE [Suspect]
     Dosage: 30 MILLIGRAM;
     Route: 048
     Dates: start: 20110316, end: 20110401
  2. OLANZAPINE [Concomitant]

REACTIONS (1)
  - HYPONATRAEMIA [None]
